FAERS Safety Report 23223002 (Version 1)
Quarter: 2023Q4

REPORT INFORMATION
  Report Type: Spontaneous
  Country: US (occurrence: US)
  Receive Date: 20231123
  Receipt Date: 20231123
  Transmission Date: 20240109
  Serious: No
  Sender: FDA-Public Use
  Company Number: US-NEUROCRINE BIOSCIENCES INC.-2023NBI09891

PATIENT
  Age: 42 Year
  Sex: Male

DRUGS (6)
  1. INGREZZA [Suspect]
     Active Substance: VALBENAZINE
     Indication: Tardive dyskinesia
     Dosage: 60 MILLIGRAM
     Route: 065
  2. INGREZZA [Suspect]
     Active Substance: VALBENAZINE
     Dosage: 40 MILLIGRAM
     Route: 065
  3. DOXEPIN [Concomitant]
     Active Substance: DOXEPIN
     Dosage: UNK, UNKNOWN
  4. SUBOXONE [Concomitant]
     Active Substance: BUPRENORPHINE HYDROCHLORIDE\NALOXONE HYDROCHLORIDE
     Dosage: UNK, UNKNOWN
     Route: 065
  5. INVEGA SUSTENNA [Concomitant]
     Active Substance: PALIPERIDONE PALMITATE
     Dosage: UNK, UNKNOWN
     Route: 065
  6. TOPAMAX [Concomitant]
     Active Substance: TOPIRAMATE
     Dosage: UNK, UNKNOWN
     Route: 065

REACTIONS (1)
  - Drooling [Recovered/Resolved]
